FAERS Safety Report 24122078 (Version 1)
Quarter: 2024Q3

REPORT INFORMATION
  Report Type: Report from Study
  Country: US (occurrence: US)
  Receive Date: 20240722
  Receipt Date: 20240722
  Transmission Date: 20241017
  Serious: Yes (Other)
  Sender: Unknown Manufacturer
  Company Number: US-MTPC-MTDA2024-0015105

PATIENT
  Age: 74 Year
  Sex: Male

DRUGS (4)
  1. RADICAVA ORS [Suspect]
     Active Substance: EDARAVONE
     Dosage: 5 MILLILITER, QD FOR 14 DAYS ON, 14 DAYS OFF
     Route: 048
     Dates: start: 202407
  2. RADICAVA ORS [Suspect]
     Active Substance: EDARAVONE
     Dosage: 5 MILLILITER, QD FOR 14 DAYS ON, 14 DAYS OFF
     Route: 048
     Dates: start: 202407
  3. RADICAVA ORS [Suspect]
     Active Substance: EDARAVONE
     Indication: Amyotrophic lateral sclerosis
     Dosage: 5 MILLILITER, QD FOR 14 DAYS ON, 14 DAYS OFF
     Route: 048
  4. RADICAVA ORS [Suspect]
     Active Substance: EDARAVONE
     Indication: Amyotrophic lateral sclerosis
     Dosage: 5 MILLILITER, QD FOR 14 DAYS ON, 14 DAYS OFF
     Route: 048

REACTIONS (6)
  - Panic attack [Recovering/Resolving]
  - Sleep disorder [Unknown]
  - Anxiety [Unknown]
  - Feeling abnormal [Recovering/Resolving]
  - Claustrophobia [Recovering/Resolving]
  - Dyspnoea [Recovering/Resolving]

NARRATIVE: CASE EVENT DATE: 20240712
